FAERS Safety Report 24693817 (Version 4)
Quarter: 2025Q1

REPORT INFORMATION
  Report Type: Report from Study
  Country: US (occurrence: US)
  Receive Date: 20241204
  Receipt Date: 20250227
  Transmission Date: 20250409
  Serious: Yes (Other)
  Sender: DR REDDYS
  Company Number: US-DRL-USA-CLI/USA/24/0017599

PATIENT
  Age: 18 Year
  Sex: Female

DRUGS (1)
  1. ZENATANE [Suspect]
     Active Substance: ISOTRETINOIN
     Indication: Product used for unknown indication
     Dosage: (ISOTRETINOIN CAPSULES, USP) CAPSULES 30 MG - DRL BOX OF 30 (3X10)
     Route: 065
     Dates: start: 20240919, end: 20241125

REACTIONS (1)
  - Exposure during pregnancy [Unknown]

NARRATIVE: CASE EVENT DATE: 20241116
